FAERS Safety Report 13331540 (Version 1)
Quarter: 2017Q1

REPORT INFORMATION
  Report Type: Spontaneous
  Country: US (occurrence: US)
  Receive Date: 20170313
  Receipt Date: 20170313
  Transmission Date: 20170428
  Serious: Yes (Other)
  Sender: FDA-Public Use
  Company Number: US-PFIZER INC-2017102447

PATIENT
  Age: 71 Year
  Sex: Female

DRUGS (2)
  1. MORPHINE [Concomitant]
     Active Substance: MORPHINE
     Dosage: UNK
  2. SUTENT [Suspect]
     Active Substance: SUNITINIB MALATE
     Indication: ANGIOSARCOMA METASTATIC
     Dosage: 25 MG, CYCLIC, (28 DAYS ON/ 14 DAYS OFF)
     Dates: start: 20170131

REACTIONS (6)
  - Dehydration [Unknown]
  - Product use issue [Unknown]
  - Pleural effusion [Unknown]
  - Malaise [Unknown]
  - Pain [Unknown]
  - Neoplasm progression [Unknown]

NARRATIVE: CASE EVENT DATE: 20170131
